FAERS Safety Report 21363739 (Version 4)
Quarter: 2023Q1

REPORT INFORMATION
  Report Type: Spontaneous
  Country: US (occurrence: US)
  Receive Date: 20220922
  Receipt Date: 20230116
  Transmission Date: 20230418
  Serious: No
  Sender: FDA-Public Use
  Company Number: US-PFIZER INC-PV202200067837

PATIENT
  Age: 29 Year
  Sex: Female

DRUGS (2)
  1. SOMAVERT [Suspect]
     Active Substance: PEGVISOMANT
     Indication: Acromegaly
     Dosage: 20 MG, DAILY
     Route: 058
     Dates: start: 202208, end: 202211
  2. SOMAVERT [Suspect]
     Active Substance: PEGVISOMANT
     Dosage: 30 MG, DAILY
     Route: 058
     Dates: start: 202211

REACTIONS (4)
  - Drug ineffective [Unknown]
  - Product dose omission issue [Unknown]
  - Fatigue [Unknown]
  - Memory impairment [Unknown]

NARRATIVE: CASE EVENT DATE: 20221001
